FAERS Safety Report 8792435 (Version 1)
Quarter: 2012Q4

REPORT INFORMATION
  Report Type: 
  Country: DE (occurrence: DE)
  Receive Date: 20120918
  Receipt Date: 20120918
  Transmission Date: 20130627
  Serious: Yes (Death, Life-Threatening)
  Sender: FDA-Public Use
  Company Number: GXKR2012DE002944

PATIENT

DRUGS (8)
  1. METFORMIN [Suspect]
     Indication: TYPE 2 DIABETES MELLITUS
     Dosage: daily dose: 1700 Mg milligram(s) every Day
     Route: 048
  2. ACETYLSALICYLIC ACID [Concomitant]
     Dosage: 100 mg, QD
  3. METOPROLOL [Concomitant]
     Dosage: daily dose: 1 Df dosage form every Day
  4. CYTOBION [Concomitant]
     Dosage: 1 DF monthly
     Route: 058
  5. KEPPRA [Concomitant]
     Dosage: 500 mg, BID
  6. NOVALGIN                                /SCH/ [Concomitant]
     Dosage: 30 gtt, QID
  7. FURO [Concomitant]
     Dosage: 60 mg, BID
  8. TRAMAL [Concomitant]
     Dosage: 100 mg, QD

REACTIONS (2)
  - Lactic acidosis [Fatal]
  - Renal failure acute [Fatal]
